FAERS Safety Report 8821917 (Version 1)
Quarter: 2012Q4

REPORT INFORMATION
  Report Type: 
  Country: HR (occurrence: HR)
  Receive Date: 20121003
  Receipt Date: 20121003
  Transmission Date: 20130627
  Serious: Yes (Other)
  Sender: FDA-Public Use
  Company Number: HR-PAR PHARMACEUTICAL, INC-2012SCPR004630

PATIENT

DRUGS (3)
  1. CIPROFLOXACIN ER [Suspect]
     Indication: PYELONEPHRITIS ACUTE
     Dosage: UNK, Unknown
     Route: 065
  2. DICLOFENAC [Concomitant]
     Indication: PYELONEPHRITIS ACUTE
     Dosage: UNK, as needed
     Route: 065
  3. PARACETAMOL [Concomitant]
     Indication: PYELONEPHRITIS ACUTE
     Dosage: UNK, as needed
     Route: 065

REACTIONS (2)
  - Drug reaction with eosinophilia and systemic symptoms [Recovered/Resolved]
  - Renal injury [Not Recovered/Not Resolved]
